FAERS Safety Report 5085221-X (Version None)
Quarter: 2006Q3

REPORT INFORMATION
  Report Type: 
  Country: None (occurrence: None)
  Receive Date: 20060731
  Receipt Date: 20051005
  Transmission Date: 20061208
  Serious: Yes (Life-Threatening, Other)
  Sender: FDA-Public Use
  Company Number: 200511835BWH

PATIENT
  Age: 20 Year
  Sex: Male
  Weight: 80.7403 kg

DRUGS (2)
  1. AVELOX [Suspect]
     Indication: WOUND
     Dosage: 400 MG, TOTAL DAILY, ORAL
     Route: 048
     Dates: start: 20050819
  2. PLAVIX [Concomitant]

REACTIONS (4)
  - ANAPHYLACTIC SHOCK [None]
  - RASH [None]
  - SWELLING [None]
  - URTICARIA [None]
